FAERS Safety Report 5311469-2 (Version None)
Quarter: 2007Q2

REPORT INFORMATION
  Report Type: 
  Country: None (occurrence: None)
  Receive Date: 20070426
  Receipt Date: 20070426
  Transmission Date: 20071010
  Serious: Yes (Other)
  Sender: FDA-Public Use
  Company Number: None

PATIENT
  Age: 86 Year
  Sex: Female
  Weight: 57.2 kg

DRUGS (5)
  1. MESALAMINE [Suspect]
  2. OMEPRAZOLE [Concomitant]
  3. COUMADIN [Concomitant]
  4. NITROGLYCERIN [Concomitant]
  5. ATENOLOL [Concomitant]

REACTIONS (1)
  - ALOPECIA [None]
